FAERS Safety Report 23433646 (Version 3)
Quarter: 2024Q2

REPORT INFORMATION
  Report Type: Spontaneous
  Country: DE (occurrence: DE)
  Receive Date: 20240123
  Receipt Date: 20240521
  Transmission Date: 20240716
  Serious: Yes (Other)
  Sender: FDA-Public Use
  Company Number: DE-TEVA-VS-3134482

PATIENT
  Age: 26 Year
  Sex: Male
  Weight: 76 kg

DRUGS (1)
  1. LEVOFLOXACIN [Suspect]
     Active Substance: LEVOFLOXACIN
     Indication: Urethritis
     Route: 048
     Dates: start: 20171128, end: 20171210

REACTIONS (12)
  - Gene mutation [Unknown]
  - Facial pain [Recovered/Resolved]
  - Headache [Recovered/Resolved]
  - Neck pain [Recovered/Resolved]
  - Chronic fatigue syndrome [Recovered/Resolved]
  - Abdominal pain [Recovered/Resolved]
  - Nausea [Recovered/Resolved]
  - Myalgia [Recovered/Resolved]
  - Intestinal barrier dysfunction [Unknown]
  - Food intolerance [Recovered/Resolved]
  - Neuralgia [Recovered/Resolved]
  - Toothache [Recovered/Resolved]

NARRATIVE: CASE EVENT DATE: 20171128
